FAERS Safety Report 7993117-6 (Version None)
Quarter: 2011Q4

REPORT INFORMATION
  Report Type: 
  Country: None (occurrence: None)
  Receive Date: 20111219
  Receipt Date: 20110318
  Transmission Date: 20120403
  Serious: No
  Sender: FDA-Public Use
  Company Number: US-ASTRAZENECA-2011SE15510

PATIENT
  Age: 65 Year
  Sex: Male
  Weight: 65.8 kg

DRUGS (2)
  1. CRESTOR [Suspect]
     Indication: BLOOD CHOLESTEROL INCREASED
     Route: 048
     Dates: start: 20030101, end: 20110101
  2. CRESTOR [Suspect]
     Route: 048

REACTIONS (4)
  - BLOOD CHOLESTEROL DECREASED [None]
  - GASTROOESOPHAGEAL REFLUX DISEASE [None]
  - PRURITUS [None]
  - URTICARIA [None]
